FAERS Safety Report 4432832-8 (Version None)
Quarter: 2004Q3

REPORT INFORMATION
  Report Type: 
  Country: None (occurrence: None)
  Receive Date: 20040823
  Receipt Date: 20040809
  Transmission Date: 20050211
  Serious: Yes (Hospitalization)
  Sender: FDA-Public Use
  Company Number: 2004054757

PATIENT
  Age: 85 Year
  Sex: Female

DRUGS (5)
  1. DOXYCYCLINE [Suspect]
     Indication: LOWER RESPIRATORY TRACT INFECTION
     Dosage: 100 MG (100 MG, 1 IN 1 D), ORAL
     Route: 048
     Dates: start: 20040624, end: 20040702
  2. ASPIRIN [Concomitant]
  3. IPRATROPIUM BROMIDE [Concomitant]
  4. FUROSEMIDE [Concomitant]
  5. SALBUTAMOL (SALBUTAMOL) [Concomitant]

REACTIONS (1)
  - CHOLESTASIS [None]
